FAERS Safety Report 11704330 (Version 1)
Quarter: 2015Q4

REPORT INFORMATION
  Report Type: Spontaneous
  Country: CA (occurrence: None)
  Receive Date: 20151105
  Receipt Date: 20151105
  Transmission Date: 20160304
  Serious: Yes (Other)
  Sender: FDA-Public Use
  Company Number: None

PATIENT
  Age: 42 Year
  Sex: Female
  Weight: 65.77 kg

DRUGS (11)
  1. DHEA [Concomitant]
     Active Substance: PRASTERONE
  2. ADRENAMEND [Concomitant]
  3. EFA [Concomitant]
  4. FOLAPRO [Concomitant]
  5. PROGESTERONE. [Concomitant]
     Active Substance: PROGESTERONE
  6. VITAMIN D [Concomitant]
     Active Substance: CHOLECALCIFEROL
  7. ESTROGEN [Concomitant]
     Active Substance: ESTRONE\SUS SCROFA OVARY
  8. VITAMIN C [Concomitant]
     Active Substance: ASCORBIC ACID
  9. TESTOSTERONE. [Concomitant]
     Active Substance: TESTOSTERONE
  10. EMPOWERPLUS [Concomitant]
  11. ZOPICLONE 5 MG [Suspect]
     Active Substance: ZOPICLONE
     Indication: SLEEP STUDY
     Dates: start: 20151008, end: 20151009

REACTIONS (5)
  - Agitation [None]
  - Suicidal ideation [None]
  - Similar reaction on previous exposure to drug [None]
  - Irritability [None]
  - Depression [None]

NARRATIVE: CASE EVENT DATE: 20151008
